FAERS Safety Report 7979191-1 (Version None)
Quarter: 2011Q4

REPORT INFORMATION
  Report Type: 
  Country: None (occurrence: None)
  Receive Date: 20111213
  Receipt Date: 20111213
  Transmission Date: 20120403
  Serious: Yes (Hospitalization)
  Sender: FDA-Public Use
  Company Number: None

PATIENT
  Age: 71 Year
  Sex: Male
  Weight: 156 kg

DRUGS (1)
  1. ARIPIPRAZOLE [Suspect]
     Indication: BIPOLAR DISORDER
     Dosage: 10 MG EVERY DAY PO
     Route: 048
     Dates: start: 20110922, end: 20110928

REACTIONS (2)
  - HYPERKALAEMIA [None]
  - TREMOR [None]
